FAERS Safety Report 13670337 (Version 1)
Quarter: 2017Q2

REPORT INFORMATION
  Report Type: Spontaneous
  Country: JP (occurrence: JP)
  Receive Date: 20170620
  Receipt Date: 20170620
  Transmission Date: 20170830
  Serious: Yes (Hospitalization)
  Sender: FDA-Public Use
  Company Number: PHJP2017JP019266

PATIENT
  Age: 86 Year
  Sex: Female

DRUGS (2)
  1. EXELON PATCH [Suspect]
     Active Substance: RIVASTIGMINE
     Indication: DEMENTIA
     Dosage: UNK
     Route: 062
  2. EXELON PATCH [Suspect]
     Active Substance: RIVASTIGMINE
     Dosage: 8 PATCHES OF 9 MG (PATCH 2.5 (CM2))
     Route: 062

REACTIONS (6)
  - Overdose [Unknown]
  - Vomiting [Unknown]
  - Intestinal obstruction [Unknown]
  - Feeding disorder [Unknown]
  - Diarrhoea [Unknown]
  - Product colour issue [Unknown]
